FAERS Safety Report 14311550 (Version 3)
Quarter: 2018Q1

REPORT INFORMATION
  Report Type: Spontaneous
  Country: JP (occurrence: JP)
  Receive Date: 20171221
  Receipt Date: 20180308
  Transmission Date: 20180509
  Serious: Yes (Death, Life-Threatening, Other)
  Sender: FDA-Public Use
  Company Number: JP-CONCORDIA PHARMACEUTICALS INC.-E2B_00008818

PATIENT
  Age: 63 Year
  Sex: Female

DRUGS (3)
  1. BUDESONIDE, FORMOTEROL FUMARATE DIHYDRATE [Suspect]
     Active Substance: BUDESONIDE\FORMOTEROL FUMARATE DIHYDRATE
     Indication: OBLITERATIVE BRONCHIOLITIS
     Route: 055
  2. PREDNISOLONE. [Suspect]
     Active Substance: PREDNISOLONE
     Indication: OBLITERATIVE BRONCHIOLITIS
  3. ERYTHROMYCIN. [Suspect]
     Active Substance: ERYTHROMYCIN
     Indication: OBLITERATIVE BRONCHIOLITIS

REACTIONS (2)
  - Respiratory failure [Fatal]
  - Drug ineffective [Fatal]
